FAERS Safety Report 8435556 (Version 2)
Quarter: 2012Q4

REPORT INFORMATION
  Report Type: 
  Country: US (occurrence: US)
  Receive Date: 20120301
  Receipt Date: 20120920
  Transmission Date: 20130627
  Serious: Yes (Other)
  Sender: FDA-Public Use
  Company Number: US-PFIZER INC-2012052230

PATIENT
  Age: 65 Year
  Sex: Female
  Weight: 86.17 kg

DRUGS (5)
  1. CELEBREX [Suspect]
     Indication: ARTHRITIS
     Dosage: 200 mg, 1x/day
     Route: 048
     Dates: end: 20120519
  2. LYRICA [Suspect]
     Indication: FIBROMYALGIA
     Dosage: 300 mg, 3x/day
     Route: 048
     Dates: start: 201108
  3. LISINOPRIL [Concomitant]
     Indication: BLOOD CHOLESTEROL INCREASED
     Dosage: 10 mg, 2x/day
     Route: 048
  4. PRAVASTATIN [Concomitant]
     Indication: BLOOD CHOLESTEROL INCREASED
     Dosage: 180 mg, daily
     Route: 048
  5. GABAPENTIN [Concomitant]
     Indication: NERVOUS SYSTEM DISORDER
     Dosage: 800 mg, 4x/day

REACTIONS (4)
  - Intervertebral disc degeneration [Unknown]
  - Fibromyalgia [Unknown]
  - Migraine [Unknown]
  - Blood cholesterol increased [Unknown]
